FAERS Safety Report 10715606 (Version 1)
Quarter: 2015Q1

REPORT INFORMATION
  Report Type: Spontaneous
  Country: US (occurrence: US)
  Receive Date: 20150116
  Receipt Date: 20150116
  Transmission Date: 20150721
  Serious: No
  Sender: FDA-Public Use
  Company Number: US-ASTRAZENECA-2015SE01290

PATIENT
  Age: 3758 Week
  Sex: Male
  Weight: 106.6 kg

DRUGS (9)
  1. AMLODIPINE BYSELATE [Concomitant]
     Indication: BLOOD DISORDER
     Route: 048
     Dates: start: 20140925
  2. OXYBUTININ [Concomitant]
     Indication: BLOOD DISORDER
     Route: 048
     Dates: start: 20140925
  3. BUMETADINE [Concomitant]
     Indication: BLOOD DISORDER
     Route: 048
     Dates: start: 20140925
  4. VITAMIN D [Concomitant]
     Active Substance: CHOLECALCIFEROL
     Indication: BLOOD DISORDER
     Route: 048
     Dates: start: 20140925
  5. CRESTOR [Suspect]
     Active Substance: ROSUVASTATIN CALCIUM
     Indication: BLOOD CHOLESTEROL INCREASED
     Route: 048
     Dates: start: 20141025
  6. METFORMIN [Concomitant]
     Active Substance: METFORMIN HYDROCHLORIDE
     Indication: BLOOD DISORDER
     Route: 048
     Dates: start: 20140925
  7. DUCOSATE SODIUM [Concomitant]
     Indication: BLOOD DISORDER
     Route: 048
     Dates: start: 20140925
  8. ASPIRIN. [Concomitant]
     Active Substance: ASPIRIN
     Indication: BLOOD DISORDER
     Route: 048
     Dates: start: 20140925
  9. MULTIVITAMIN [Concomitant]
     Active Substance: VITAMINS
     Indication: BLOOD DISORDER
     Route: 048
     Dates: start: 20140925

REACTIONS (3)
  - Pain [Unknown]
  - Dry mouth [Not Recovered/Not Resolved]
  - Myalgia [Unknown]

NARRATIVE: CASE EVENT DATE: 20141025
